FAERS Safety Report 9560291 (Version 2)
Quarter: 2013Q4

REPORT INFORMATION
  Report Type: Spontaneous
  Country: ES (occurrence: ES)
  Receive Date: 20130927
  Receipt Date: 20131015
  Transmission Date: 20140711
  Serious: Yes (Other)
  Sender: FDA-Public Use
  Company Number: ES-FRI-1000049273

PATIENT
  Age: 69 Year
  Sex: Male
  Weight: 67 kg

DRUGS (3)
  1. ACLIDINIUM [Suspect]
     Indication: PULMONARY HYPERTENSION
     Dosage: 2 DF
     Route: 055
     Dates: start: 20130508, end: 20130513
  2. SYMBICORT [Concomitant]
  3. PLUSVENT [Concomitant]

REACTIONS (3)
  - Gastrooesophageal reflux disease [Recovered/Resolved]
  - Dyspepsia [Recovered/Resolved]
  - Cough [Recovered/Resolved]
